FAERS Safety Report 24137220 (Version 1)
Quarter: 2024Q3

REPORT INFORMATION
  Report Type: Report from Study
  Country: GB (occurrence: GB)
  Receive Date: 20240725
  Receipt Date: 20240725
  Transmission Date: 20241016
  Serious: Yes (Hospitalization)
  Sender: SAMSUNG BIOEPIS
  Company Number: GB-SAMSUNG BIOEPIS-SB-2024-21869

PATIENT
  Age: 82 Year
  Sex: Male

DRUGS (1)
  1. ETANERCEPT [Suspect]
     Active Substance: ETANERCEPT
     Indication: Rheumatoid arthritis
     Route: 058
     Dates: start: 20231220

REACTIONS (6)
  - Dyspnoea [Unknown]
  - Arthritis [Unknown]
  - Cough [Unknown]
  - Illness [Unknown]
  - Influenza [Unknown]
  - Viral infection [Unknown]
